FAERS Safety Report 18462277 (Version 1)
Quarter: 2020Q4

REPORT INFORMATION
  Report Type: Spontaneous
  Country: US (occurrence: US)
  Receive Date: 20201104
  Receipt Date: 20201104
  Transmission Date: 20210114
  Serious: No
  Sender: FDA-Public Use
  Company Number: US-TEVA-2020-US-1840781

PATIENT
  Sex: Female

DRUGS (15)
  1. B-12 1000 MCG [Concomitant]
  2. NYSTATIN 500K UNIT [Concomitant]
  3. AUSTEDO [Suspect]
     Active Substance: DEUTETRABENAZINE
     Indication: HUNTINGTON^S DISEASE
     Dosage: 36 MILLIGRAM DAILY;
     Route: 048
     Dates: start: 20190718
  4. OYSTER SHELL CALCIUM [Concomitant]
     Active Substance: CALCIUM
  5. AMBIEN [Concomitant]
     Active Substance: ZOLPIDEM TARTRATE
  6. KLONOPIN [Concomitant]
     Active Substance: CLONAZEPAM
  7. MELATONIN 3 MG [Concomitant]
  8. SEROQUEL [Concomitant]
     Active Substance: QUETIAPINE FUMARATE
  9. BUSPIRONE HCL [Concomitant]
     Active Substance: BUSPIRONE HYDROCHLORIDE
  10. ZOLOFT [Concomitant]
     Active Substance: SERTRALINE HYDROCHLORIDE
  11. MAXALT 10 MG [Concomitant]
  12. MILK OF MAGNESIA [Concomitant]
     Active Substance: MAGNESIUM HYDROXIDE
  13. SYNTHROID [Concomitant]
     Active Substance: LEVOTHYROXINE SODIUM
  14. FERROUS GLUCONATE 324(37.5) [Concomitant]
  15. TYLENOL [Concomitant]
     Active Substance: ACETAMINOPHEN

REACTIONS (4)
  - Gait disturbance [Unknown]
  - Muscular weakness [Unknown]
  - Balance disorder [Recovering/Resolving]
  - Anxiety [Unknown]
